FAERS Safety Report 17042440 (Version 1)
Quarter: 2019Q4

REPORT INFORMATION
  Report Type: Spontaneous
  Country: US (occurrence: US)
  Receive Date: 20191118
  Receipt Date: 20191118
  Transmission Date: 20200122
  Serious: Yes (Other)
  Sender: FDA-Public Use
  Company Number: US-ROCHE-2388299

PATIENT
  Sex: Female

DRUGS (1)
  1. KLONOPIN [Suspect]
     Active Substance: CLONAZEPAM
     Indication: PRODUCT USED FOR UNKNOWN INDICATION
     Route: 065

REACTIONS (11)
  - Blindness [Unknown]
  - Panic disorder [Unknown]
  - Fibromyalgia [Unknown]
  - Post-traumatic stress disorder [Unknown]
  - Chloasma [Unknown]
  - Staphylococcal infection [Unknown]
  - Vertigo [Unknown]
  - Deafness [Unknown]
  - Spinal disorder [Unknown]
  - Psychotic disorder [Unknown]
  - Migraine [Unknown]
